FAERS Safety Report 12268522 (Version 1)
Quarter: 2016Q2

REPORT INFORMATION
  Report Type: Spontaneous
  Country: US (occurrence: US)
  Receive Date: 20160414
  Receipt Date: 20160414
  Transmission Date: 20160815
  Serious: Yes (Other)
  Sender: FDA-Public Use
  Company Number: ADR-2015-00411

PATIENT
  Age: 54 Year
  Sex: Female

DRUGS (8)
  1. COMPOUNDED BACLOFEN [Suspect]
     Active Substance: BACLOFEN
     Dosage: 99.91 MCG/DAY
     Route: 037
  2. CLONIDINE. [Suspect]
     Active Substance: CLONIDINE
     Dosage: 199.83 MCG/DAY
     Route: 037
  3. MORPHINE [Suspect]
     Active Substance: MORPHINE
     Dosage: 2.9959 MG/DAY
     Route: 037
     Dates: start: 20150302
  4. CLONIDINE. [Suspect]
     Active Substance: CLONIDINE
     Dosage: 239.67 MCG/DAY
     Route: 037
     Dates: start: 20150302
  5. MORPHINE [Suspect]
     Active Substance: MORPHINE
     Dosage: 2.4978 MG/DAY
     Route: 037
  6. BUPIVACAINE. [Suspect]
     Active Substance: BUPIVACAINE
     Dosage: 8.988 MG/DAY
     Route: 037
     Dates: start: 20150302
  7. COMPOUNDED BACLOFEN [Suspect]
     Active Substance: BACLOFEN
     Dosage: 119.83 MCG/DAY
     Route: 037
     Dates: start: 20150302
  8. BUPIVACAINE. [Suspect]
     Active Substance: BUPIVACAINE
     Dosage: 7.494 MG/DAY
     Route: 037

REACTIONS (20)
  - Bacterial test positive [Not Recovered/Not Resolved]
  - Medical device site erythema [Not Recovered/Not Resolved]
  - Pain [Not Recovered/Not Resolved]
  - Drug withdrawal syndrome [Not Recovered/Not Resolved]
  - Headache [Not Recovered/Not Resolved]
  - Insomnia [Not Recovered/Not Resolved]
  - Implant site extravasation [Not Recovered/Not Resolved]
  - Muscle spasms [Not Recovered/Not Resolved]
  - Hypotonia [Not Recovered/Not Resolved]
  - Incision site erythema [Not Recovered/Not Resolved]
  - Medical device site swelling [Not Recovered/Not Resolved]
  - Meningitis [Not Recovered/Not Resolved]
  - Dyspnoea [Not Recovered/Not Resolved]
  - No therapeutic response [Not Recovered/Not Resolved]
  - Back pain [Not Recovered/Not Resolved]
  - Staphylococcal infection [Not Recovered/Not Resolved]
  - Incision site pain [Not Recovered/Not Resolved]
  - Medical device site cellulitis [Not Recovered/Not Resolved]
  - Heart rate increased [Not Recovered/Not Resolved]
  - Incision site swelling [Not Recovered/Not Resolved]
